FAERS Safety Report 7538114-X (Version None)
Quarter: 2011Q2

REPORT INFORMATION
  Report Type: 
  Country: None (occurrence: None)
  Receive Date: 20110609
  Receipt Date: 19970722
  Transmission Date: 20111010
  Serious: Yes (Other)
  Sender: FDA-Public Use
  Company Number: PHHO1997BR04094

PATIENT
  Age: 57 Year
  Sex: Female
  Weight: 75.6 kg

DRUGS (4)
  1. DIOVAN [Suspect]
     Dosage: 80 MG, QD
     Dates: start: 19970527
  2. ISOSORBIDE [Concomitant]
  3. HYGROTON [Concomitant]
     Dosage: UNK
     Dates: start: 19970622
  4. ASPIRIN [Concomitant]

REACTIONS (1)
  - BRONCHOSPASM [None]
